FAERS Safety Report 7642345-8 (Version None)
Quarter: 2011Q3

REPORT INFORMATION
  Report Type: 
  Country: None (occurrence: None)
  Receive Date: 20110728
  Receipt Date: 20110629
  Transmission Date: 20111222
  Serious: No
  Sender: FDA-Public Use
  Company Number: US-BAYER-2011-058749

PATIENT
  Age: 94 Year
  Sex: Female
  Weight: 43 kg

DRUGS (3)
  1. VITAMIN TAB [Concomitant]
  2. PLAVIX [Concomitant]
  3. ALEVE (CAPLET) [Suspect]
     Indication: BACK PAIN
     Dosage: 440 MG, TID
     Route: 048
     Dates: start: 20110329

REACTIONS (1)
  - BACK PAIN [None]
